FAERS Safety Report 6042606-2 (Version None)
Quarter: 2009Q1

REPORT INFORMATION
  Report Type: 
  Country: None (occurrence: None)
  Receive Date: 20090119
  Receipt Date: 20081128
  Transmission Date: 20090719
  Serious: Yes (Other)
  Sender: FDA-Public Use
  Company Number: PL-BAYER-200818917GPV

PATIENT
  Age: 59 Year
  Sex: Male
  Weight: 84 kg

DRUGS (12)
  1. NEXAVAR [Suspect]
     Indication: RENAL CELL CARCINOMA
     Dosage: TOTAL DAILY DOSE: 800 MG  UNIT DOSE: 200 MG
     Route: 048
     Dates: start: 20071207, end: 20080523
  2. NEXAVAR [Suspect]
     Dosage: TOTAL DAILY DOSE: 800 MG
     Route: 048
     Dates: start: 20081003
  3. NEXAVAR [Suspect]
     Dosage: TOTAL DAILY DOSE: 800 MG
     Route: 048
     Dates: start: 20080521, end: 20080523
  4. NEXAVAR [Suspect]
     Dosage: TOTAL DAILY DOSE: 800 MG
     Route: 048
     Dates: start: 20080808, end: 20080926
  5. DEXAMETHASONE [Concomitant]
     Indication: PROPHYLAXIS
     Route: 048
     Dates: start: 20071107, end: 20080406
  6. MILURIT [Concomitant]
     Indication: HYPERURICAEMIA
     Route: 048
     Dates: start: 20060613, end: 20080521
  7. MILURIT [Concomitant]
     Route: 048
     Dates: start: 20080521
  8. LOPERAMIDE [Concomitant]
     Indication: DIARRHOEA
     Route: 048
     Dates: start: 20060613
  9. CAPTOPRIL [Concomitant]
     Indication: HYPERTENSION
     Route: 048
     Dates: start: 20050308
  10. TERTENSIF [Concomitant]
     Indication: HYPERTENSION
     Route: 048
     Dates: start: 20050308
  11. BETALOC ZOK [Concomitant]
     Indication: HYPERTENSION
     Route: 048
     Dates: start: 20040301
  12. ENARENAL [Concomitant]
     Indication: HYPERTENSION
     Route: 048
     Dates: start: 20040301

REACTIONS (3)
  - CHRONIC MYELOID LEUKAEMIA [None]
  - METASTASES TO BONE MARROW [None]
  - WHITE BLOOD CELL COUNT INCREASED [None]
